FAERS Safety Report 18194474 (Version 3)
Quarter: 2020Q4

REPORT INFORMATION
  Report Type: Report from Study
  Country: US (occurrence: US)
  Receive Date: 20200826
  Receipt Date: 20201207
  Transmission Date: 20210113
  Serious: No
  Sender: FDA-Public Use
  Company Number: NVSC2020US229742

PATIENT
  Age: 45 Year
  Sex: Female

DRUGS (1)
  1. GLATOPA [Suspect]
     Active Substance: GLATIRAMER ACETATE
     Indication: INJECTION SITE PRURITUS
     Dosage: UNK
     Route: 065

REACTIONS (4)
  - Injection site infection [Unknown]
  - Injection site pruritus [Unknown]
  - Injection site mass [Unknown]
  - Wrong technique in product usage process [Unknown]
